FAERS Safety Report 4921228-8 (Version None)
Quarter: 2006Q1

REPORT INFORMATION
  Report Type: 
  Country: None (occurrence: None)
  Receive Date: 20060221
  Receipt Date: 20060210
  Transmission Date: 20060701
  Serious: Yes (Death, Hospitalization)
  Sender: FDA-Public Use
  Company Number: 200610373GDS

PATIENT
  Age: 46 Year
  Sex: Female
  Weight: 68.6 kg

DRUGS (10)
  1. MOXIFLOXACIN HCL [Suspect]
     Indication: SINUSITIS
     Dosage: 400 MG, ORAL
     Route: 048
     Dates: start: 20051013, end: 20051014
  2. CEPRANDAL [Concomitant]
  3. ADIRO [Concomitant]
  4. AMARYL [Concomitant]
  5. CAPOTEN [Concomitant]
  6. COROPRES [Concomitant]
  7. DIAMBEN [Concomitant]
  8. DIGOXIN [Concomitant]
  9. SEGURIL [Concomitant]
  10. EFFERALGAN [Concomitant]

REACTIONS (9)
  - CARDIAC ARREST [None]
  - CARDIAC FIBRILLATION [None]
  - CYANOSIS [None]
  - DIARRHOEA [None]
  - DISCOMFORT [None]
  - HYPERGLYCAEMIA [None]
  - KETOACIDOSIS [None]
  - MYOCARDIAL INFARCTION [None]
  - VOMITING [None]
